FAERS Safety Report 9549260 (Version 1)
Quarter: 2013Q3

REPORT INFORMATION
  Report Type: Spontaneous
  Country: IN (occurrence: IN)
  Receive Date: 20130924
  Receipt Date: 20130924
  Transmission Date: 20140515
  Serious: Yes (Other)
  Sender: FDA-Public Use
  Company Number: IN-BAXTER-2013BAX037028

PATIENT
  Sex: 0

DRUGS (1)
  1. DEXTRAN [Suspect]
     Indication: THROMBOSIS PROPHYLAXIS
     Dosage: 125 ML/HOUR DAILY FOR 4 DAYS
     Route: 042

REACTIONS (1)
  - Haematoma [Unknown]
